FAERS Safety Report 10517090 (Version 6)
Quarter: 2015Q2

REPORT INFORMATION
  Report Type: Spontaneous
  Country: ES (occurrence: ES)
  Receive Date: 20141014
  Receipt Date: 20150410
  Transmission Date: 20150821
  Serious: Yes (Other)
  Sender: FDA-Public Use
  Company Number: ES-AMGEN-ESPSP2014059220

PATIENT
  Age: 62 Year
  Sex: Female

DRUGS (23)
  1. ENBREL [Suspect]
     Active Substance: ETANERCEPT
     Dosage: 50 MG, QWK
     Route: 058
  2. ENBREL [Suspect]
     Active Substance: ETANERCEPT
     Dosage: 50 MG, WEEKLY
     Route: 058
  3. METOJECT [Concomitant]
     Active Substance: METHOTREXATE SODIUM
     Indication: RHEUMATOID ARTHRITIS
     Dosage: 1 INJECTION WEEKLY
  4. TRAMADOL [Concomitant]
     Active Substance: TRAMADOL
     Indication: PAIN
     Dosage: 1 TABLET EVERY 12 HOURS
  5. INSULIN [Suspect]
     Active Substance: INSULIN NOS
     Indication: DIABETES MELLITUS
     Dosage: ONE WEEKLY INJECTION ON SUNDAYS
     Route: 065
  6. VALSARTAN. [Concomitant]
     Active Substance: VALSARTAN
     Indication: HYPERTENSION
     Dosage: 1 TABLET DAILY
  7. BISOPROLOL [Concomitant]
     Active Substance: BISOPROLOL
     Indication: HYPERTENSION
     Dosage: 1 TABLET DAILY
  8. FOSTER                             /06206901/ [Concomitant]
     Indication: ASTHMA
     Dosage: 1 DF, 2X/DAY  (8/12H)
     Route: 055
  9. ENBREL [Suspect]
     Active Substance: ETANERCEPT
     Indication: RHEUMATOID ARTHRITIS
     Dosage: 50 MG, WEEKLY
     Route: 058
     Dates: start: 20140707
  10. DIAZEPAM. [Concomitant]
     Active Substance: DIAZEPAM
     Indication: MUSCLE RELAXANT THERAPY
     Dosage: 1 TABLET DAILY
  11. ENBREL [Suspect]
     Active Substance: ETANERCEPT
     Dosage: 50 MG, QWK
     Route: 058
  12. ENBREL [Suspect]
     Active Substance: ETANERCEPT
     Dosage: UNK
     Route: 065
  13. ACFOL [Concomitant]
     Active Substance: FOLIC ACID
     Indication: ANAEMIA
     Dosage: 2 TABLET WEEKLY
  14. DIANBEN [Concomitant]
     Active Substance: METFORMIN HYDROCHLORIDE
     Indication: DIABETES MELLITUS
     Dosage: 1 TABLET TWICE A DAY
  15. CITALOPRAM [Concomitant]
     Active Substance: CITALOPRAM HYDROBROMIDE
     Indication: DEPRESSION
     Dosage: 1 TABLET DAILY
  16. TROMALYT [Concomitant]
     Active Substance: ASPIRIN
     Indication: ANTICOAGULANT THERAPY
     Dosage: 1 TABLET DAILY
  17. ARACENAC [Concomitant]
     Dosage: 100 MG EVERY 12 HOURS
  18. INSULIN RAPID [Concomitant]
     Active Substance: INSULIN NOS
     Indication: DIABETES MELLITUS
     Dosage: 12-12-12
  19. CRESTOR [Concomitant]
     Active Substance: ROSUVASTATIN CALCIUM
     Indication: BLOOD CHOLESTEROL INCREASED
     Dosage: 1 TABLET DAILY
  20. ZAMENE [Concomitant]
     Active Substance: DEFLAZACORT
     Dosage: 1 TABLET EVERY 12 HOURS
  21. ENBREL [Suspect]
     Active Substance: ETANERCEPT
     Dosage: 50 MG, WEEKLY
     Route: 058
  22. OPIREN [Concomitant]
     Active Substance: LANSOPRAZOLE
     Indication: PROPHYLAXIS
     Dosage: 1 TABLET DAILY
  23. LANTUS [Concomitant]
     Active Substance: INSULIN GLARGINE
     Indication: DIABETES MELLITUS
     Dosage: 40 MG, 1X/DAY, AT NIGHT

REACTIONS (19)
  - Sensory loss [Not Recovered/Not Resolved]
  - Nausea [Unknown]
  - Chest discomfort [Not Recovered/Not Resolved]
  - Injection site bruising [Recovered/Resolved]
  - Nasopharyngitis [Not Recovered/Not Resolved]
  - Injection site mass [Recovered/Resolved]
  - Pyrexia [Recovered/Resolved]
  - Muscular weakness [Not Recovered/Not Resolved]
  - Paraesthesia [Not Recovered/Not Resolved]
  - Dyspnoea [Not Recovered/Not Resolved]
  - Cough [Not Recovered/Not Resolved]
  - Vomiting [Unknown]
  - Throat irritation [Not Recovered/Not Resolved]
  - Blister [Not Recovered/Not Resolved]
  - Lung infection [Not Recovered/Not Resolved]
  - Injection site pain [Unknown]
  - Anaemia [Unknown]
  - Mobility decreased [Not Recovered/Not Resolved]
  - Pruritus [Not Recovered/Not Resolved]

NARRATIVE: CASE EVENT DATE: 2014
